FAERS Safety Report 6201818-5 (Version None)
Quarter: 2009Q2

REPORT INFORMATION
  Report Type: 
  Country: None (occurrence: None)
  Receive Date: 20090526
  Receipt Date: 20090518
  Transmission Date: 20091009
  Serious: Yes (Death)
  Sender: FDA-Public Use
  Company Number: JP-ABBOTT-09P-087-0570564-00

PATIENT
  Age: 87 Year
  Sex: Male

DRUGS (5)
  1. LEUPLIN SR FOR INJECTION 11.25 MG [Suspect]
     Indication: PROSTATE CANCER STAGE IV
     Route: 058
     Dates: start: 20061024, end: 20080107
  2. LEUPROLIDE ACETATE [Suspect]
     Indication: PROSTATE CANCER STAGE IV
     Dates: start: 20060926, end: 20060926
  3. CASODEX [Concomitant]
     Indication: PROSTATE CANCER STAGE IV
     Route: 048
     Dates: start: 20060926, end: 20070806
  4. FLUTAMIDE [Concomitant]
     Indication: PROSTATE CANCER STAGE IV
     Route: 048
     Dates: start: 20070806, end: 20080130
  5. DIETHYLSTILBESTROL [Concomitant]
     Indication: PROSTATE CANCER STAGE IV
     Route: 042
     Dates: start: 20070814, end: 20070902

REACTIONS (1)
  - PROSTATE CANCER [None]
